FAERS Safety Report 9285539 (Version 4)
Quarter: 2014Q2

REPORT INFORMATION
  Report Type: Report from Study
  Country: CA (occurrence: CA)
  Receive Date: 20130513
  Receipt Date: 20140423
  Transmission Date: 20141212
  Serious: Yes (Hospitalization, Other)
  Sender: FDA-Public Use
  Company Number: CA-ROCHE-CID000000002221893

PATIENT
  Age: 62 Year
  Sex: Female
  Weight: 59 kg

DRUGS (15)
  1. ACTEMRA [Suspect]
     Indication: RHEUMATOID ARTHRITIS
     Route: 042
     Dates: start: 20120814
  2. ACTEMRA [Suspect]
     Route: 042
     Dates: start: 20130827
  3. DETROL [Concomitant]
     Route: 048
  4. OMEPRAZOLE [Concomitant]
     Route: 048
     Dates: start: 20130225
  5. DOCUSATE SODIUM [Concomitant]
     Route: 048
  6. FERROUS FUMARATE [Concomitant]
     Route: 048
  7. VENLAFAXINE [Concomitant]
     Route: 048
  8. CLONAZEPAM [Concomitant]
     Indication: DEPRESSION
     Route: 048
  9. NAPROXEN [Concomitant]
     Route: 048
  10. PREDNISONE [Concomitant]
     Route: 048
  11. ACTONEL [Concomitant]
     Route: 030
  12. CALCIUM CARBONATE [Concomitant]
     Route: 048
  13. SENOKOT [Concomitant]
     Route: 048
  14. RAMIPRIL [Concomitant]
     Route: 048
     Dates: start: 20130225
  15. HYDROCHLOROTHIAZIDE [Concomitant]
     Route: 048
     Dates: start: 20130225

REACTIONS (17)
  - Arthritis bacterial [Recovered/Resolved]
  - Vaginal haemorrhage [Not Recovered/Not Resolved]
  - Arthropathy [Unknown]
  - Nasopharyngitis [Recovered/Resolved]
  - Injection site extravasation [Recovered/Resolved]
  - Contusion [Not Recovered/Not Resolved]
  - Contusion [Not Recovered/Not Resolved]
  - Contusion [Not Recovered/Not Resolved]
  - Rash [Recovering/Resolving]
  - Joint swelling [Not Recovered/Not Resolved]
  - Pain in extremity [Not Recovered/Not Resolved]
  - Pain [Not Recovered/Not Resolved]
  - Abdominal pain upper [Not Recovered/Not Resolved]
  - Depression [Not Recovered/Not Resolved]
  - Chest pain [Not Recovered/Not Resolved]
  - Arthralgia [Not Recovered/Not Resolved]
  - Cough [Recovered/Resolved]
